FAERS Safety Report 12704993 (Version 2)
Quarter: 2016Q3

REPORT INFORMATION
  Report Type: Report from Study
  Country: US (occurrence: US)
  Receive Date: 20160831
  Receipt Date: 20160923
  Transmission Date: 20161109
  Serious: Yes (Hospitalization)
  Sender: FDA-Public Use
  Company Number: US-ABBVIE-16K-163-1711721-00

PATIENT
  Age: 35 Year
  Sex: Male
  Weight: 127.12 kg

DRUGS (1)
  1. HUMIRA [Suspect]
     Active Substance: ADALIMUMAB
     Indication: PSORIATIC ARTHROPATHY
     Route: 058
     Dates: start: 201605

REACTIONS (3)
  - Arthritis [Recovering/Resolving]
  - Back pain [Recovered/Resolved]
  - Back injury [Recovering/Resolving]

NARRATIVE: CASE EVENT DATE: 20160807
